FAERS Safety Report 20790694 (Version 1)
Quarter: 2022Q2

REPORT INFORMATION
  Report Type: Spontaneous
  Country: US (occurrence: None)
  Receive Date: 20220505
  Receipt Date: 20220505
  Transmission Date: 20220720
  Serious: No
  Sender: FDA-Public Use
  Company Number: None

PATIENT
  Age: 44 Year
  Sex: Female
  Weight: 81 kg

DRUGS (9)
  1. XEMBIFY [Suspect]
     Active Substance: HUMAN IMMUNOGLOBULIN G
     Indication: Immunoglobulins decreased
     Dosage: FREQUENCY : WEEKLY;?
     Route: 058
  2. ADDERALL [Concomitant]
     Active Substance: AMPHETAMINE ASPARTATE\AMPHETAMINE SULFATE\DEXTROAMPHETAMINE SACCHARATE\DEXTROAMPHETAMINE SULFATE
     Dates: start: 20200501
  3. LYRICA [Concomitant]
     Active Substance: PREGABALIN
     Dates: start: 20200501
  4. MELOXICAM [Concomitant]
     Active Substance: MELOXICAM
     Dates: start: 20210501
  5. QVAR [Concomitant]
     Active Substance: BECLOMETHASONE DIPROPIONATE
     Dates: start: 20220301
  6. NEXIUM [Concomitant]
     Active Substance: ESOMEPRAZOLE MAGNESIUM
     Dates: start: 20200501
  7. SHAROBEL [Concomitant]
     Active Substance: NORETHINDRONE
     Dates: start: 20200501
  8. TRAMADOL [Concomitant]
     Active Substance: TRAMADOL
     Dates: start: 20180501
  9. XYZAL [Concomitant]
     Active Substance: LEVOCETIRIZINE DIHYDROCHLORIDE
     Dates: start: 20210501

REACTIONS (1)
  - Swelling [None]

NARRATIVE: CASE EVENT DATE: 20220423
